FAERS Safety Report 14204278 (Version 1)
Quarter: 2017Q4

REPORT INFORMATION
  Report Type: Spontaneous
  Country: CN (occurrence: CN)
  Receive Date: 20171120
  Receipt Date: 20171120
  Transmission Date: 20180321
  Serious: Yes (Other)
  Sender: FDA-Public Use
  Company Number: CN-BAYER-2017-217490

PATIENT
  Age: 9 Year
  Sex: Male

DRUGS (2)
  1. KOGENATE [Suspect]
     Active Substance: ANTIHEMOPHILIC FACTOR, HUMAN RECOMBINANT
     Indication: FACTOR VIII DEFICIENCY
     Dosage: UNK
     Route: 040
     Dates: start: 2011, end: 2016
  2. KOGENATE [Suspect]
     Active Substance: ANTIHEMOPHILIC FACTOR, HUMAN RECOMBINANT
     Indication: FACTOR VIII DEFICIENCY
     Dosage: 10 U/ KG, TIW
     Route: 040
     Dates: start: 2016

REACTIONS (2)
  - Haemarthrosis [None]
  - Joint range of motion decreased [None]

NARRATIVE: CASE EVENT DATE: 2011
